FAERS Safety Report 4732965-2 (Version None)
Quarter: 2005Q3

REPORT INFORMATION
  Report Type: 
  Country: None (occurrence: None)
  Receive Date: 20050802
  Receipt Date: 20050802
  Transmission Date: 20060218
  Serious: Yes (Hospitalization)
  Sender: FDA-Public Use
  Company Number: None

PATIENT
  Age: 35 Year
  Sex: Male
  Weight: 133.3575 kg

DRUGS (8)
  1. SEPTRA [Suspect]
     Indication: PNEUMOCYSTIS JIROVECI PNEUMONIA
     Dosage: 465 MG IV Q 6 H
     Dates: start: 20050506, end: 20050517
  2. ATAZONAVIR [Concomitant]
  3. AZITHROMYCIN [Concomitant]
  4. CLOTRIMAZOLE [Concomitant]
  5. DAPSONE [Concomitant]
  6. EFAVIRENZ [Concomitant]
  7. FLUOXETINE [Concomitant]
  8. DUONEB [Concomitant]

REACTIONS (3)
  - BLOOD POTASSIUM INCREASED [None]
  - HYPONATRAEMIA [None]
  - INAPPROPRIATE ANTIDIURETIC HORMONE SECRETION [None]
